FAERS Safety Report 4855384-7 (Version None)
Quarter: 2005Q4

REPORT INFORMATION
  Report Type: 
  Country: None (occurrence: None)
  Receive Date: 20051125
  Receipt Date: 20050310
  Transmission Date: 20060501
  Serious: Yes (Other)
  Sender: FDA-Public Use
  Company Number: US-JNJFOC-20041102951

PATIENT
  Age: 72 Year
  Sex: Female

DRUGS (6)
  1. LEVAQUIN [Suspect]
     Indication: URINARY TRACT INFECTION
     Dosage: 500 MG, 1 IN 1 DAY, ORAL
     Route: 048
     Dates: start: 20041026, end: 20041103
  2. LOTREL [Concomitant]
  3. LIPITOR [Concomitant]
  4. CALCIUM GLUCONATE [Concomitant]
  5. ZINC [Concomitant]
  6. VITAMINS [Concomitant]

REACTIONS (2)
  - DRUG INEFFECTIVE [None]
  - TENDON RUPTURE [None]
